FAERS Safety Report 17635311 (Version 2)
Quarter: 2020Q2

REPORT INFORMATION
  Report Type: Spontaneous
  Country: FR (occurrence: FR)
  Receive Date: 20200406
  Receipt Date: 20200416
  Transmission Date: 20200713
  Serious: Yes (Hospitalization)
  Sender: FDA-Public Use
  Company Number: FR-ALSI-202000097

PATIENT
  Sex: Male

DRUGS (1)
  1. NITROUS OXIDE. [Suspect]
     Active Substance: NITROUS OXIDE
     Indication: INTENTIONAL PRODUCT MISUSE
     Route: 055

REACTIONS (1)
  - Subacute combined cord degeneration [Not Recovered/Not Resolved]
